FAERS Safety Report 4951992-3 (Version None)
Quarter: 2006Q1

REPORT INFORMATION
  Report Type: 
  Country: None (occurrence: None)
  Receive Date: 20060320
  Receipt Date: 20060306
  Transmission Date: 20060701
  Serious: Yes (Other)
  Sender: FDA-Public Use
  Company Number: 2006033866

PATIENT
  Sex: Female

DRUGS (2)
  1. LYRICA [Suspect]
     Indication: PAIN
     Dosage: ORAL
     Route: 048
     Dates: start: 20050501, end: 20060101
  2. OXYCODONE (OXYCODONE) [Concomitant]

REACTIONS (6)
  - ACUTE PSYCHOSIS [None]
  - ALOPECIA [None]
  - DRUG EFFECT DECREASED [None]
  - GINGIVAL DISORDER [None]
  - ONYCHOMADESIS [None]
  - TOOTH DISORDER [None]
